FAERS Safety Report 8807606 (Version 1)
Quarter: 2012Q4

REPORT INFORMATION
  Report Type: 
  Country: IE (occurrence: IE)
  Receive Date: 20120925
  Receipt Date: 20120925
  Transmission Date: 20130627
  Serious: Yes (Other)
  Sender: FDA-Public Use
  Company Number: IE-PFIZER INC-2012234322

PATIENT
  Sex: Male

DRUGS (1)
  1. EFEXOR XL [Suspect]

REACTIONS (2)
  - Hypertension [Unknown]
  - Surgery [Unknown]
